FAERS Safety Report 7919541-5 (Version None)
Quarter: 2011Q4

REPORT INFORMATION
  Report Type: 
  Country: None (occurrence: None)
  Receive Date: 20111115
  Receipt Date: 20111103
  Transmission Date: 20120403
  Serious: Yes (Hospitalization)
  Sender: FDA-Public Use
  Company Number: 2011S10000103

PATIENT
  Age: 76 Year
  Sex: Male
  Weight: 131.5 kg

DRUGS (27)
  1. SOLD-MEDROL [Concomitant]
  2. COLCHICINE [Concomitant]
  3. ULORIC [Concomitant]
  4. COZAAR [Concomitant]
  5. ASPIRIN [Concomitant]
  6. ALLOPURINOL [Concomitant]
  7. FLONASE [Concomitant]
  8. SIMVASTATIN [Concomitant]
  9. COLACE [Concomitant]
  10. CARDURA [Concomitant]
  11. LASIX [Concomitant]
  12. VENTOLIN [Concomitant]
  13. PLAVIX [Concomitant]
  14. METFORMIN HCL [Concomitant]
  15. KRYSTEXXA [Suspect]
     Indication: GOUTY TOPHUS
     Dosage: 8 MG;XI;IV
     Route: 042
     Dates: start: 20111025, end: 20111025
  16. KRYSTEXXA [Suspect]
     Indication: GOUTY TOPHUS
     Dosage: 8 MG;XI;IV
     Route: 042
     Dates: start: 20111011, end: 20111011
  17. PEPCID [Concomitant]
  18. LOPRESSOR [Concomitant]
  19. ZOSYN [Concomitant]
  20. BENADRYL /00945501/ [Concomitant]
  21. POTASSIUM CHLORIDE [Concomitant]
  22. CRESTOR [Concomitant]
  23. PYLENOL /00020001/ [Concomitant]
  24. AUGMENTIN '125' [Concomitant]
  25. LOPID [Concomitant]
  26. PREDNISONE TAB [Concomitant]
  27. DIGOXIN [Concomitant]

REACTIONS (3)
  - EMBOLIC STROKE [None]
  - CEREBRAL INFARCTION [None]
  - COUGH [None]
